FAERS Safety Report 19805656 (Version 2)
Quarter: 2021Q3

REPORT INFORMATION
  Report Type: Spontaneous
  Country: US (occurrence: US)
  Receive Date: 20210909
  Receipt Date: 20210921
  Transmission Date: 20211014
  Serious: No
  Sender: FDA-Public Use
  Company Number: US-PURACAP-US-2021EPCSPO00963

PATIENT
  Age: 74 Year
  Sex: Female
  Weight: 150 kg

DRUGS (2)
  1. DUTASTERIDE. [Suspect]
     Active Substance: DUTASTERIDE
     Indication: PRODUCT USED FOR UNKNOWN INDICATION
     Route: 065
     Dates: start: 202105, end: 202107
  2. DUTASTERIDE. [Suspect]
     Active Substance: DUTASTERIDE
     Route: 065

REACTIONS (3)
  - Drug ineffective [Unknown]
  - Product physical issue [Unknown]
  - Nausea [Unknown]

NARRATIVE: CASE EVENT DATE: 2021
